FAERS Safety Report 15231033 (Version 2)
Quarter: 2020Q4

REPORT INFORMATION
  Report Type: Report from Study
  Country: DE (occurrence: DE)
  Receive Date: 20180802
  Receipt Date: 20201217
  Transmission Date: 20210113
  Serious: Yes (Other)
  Sender: FDA-Public Use
  Company Number: DE-MYLANLABS-2018M1037200

PATIENT
  Age: 51 Year
  Sex: Female
  Weight: 67 kg

DRUGS (1)
  1. CLIFT 20 MG/ML INJEKTIONSL?SUNG IN EINER FERTIGSPRITZE [Suspect]
     Active Substance: GLATIRAMER
     Indication: MULTIPLE SCLEROSIS
     Dosage: 20 MILLIGRAM PER MILLILITRE, QW
     Dates: start: 201804, end: 201805

REACTIONS (12)
  - Eye swelling [Not Recovered/Not Resolved]
  - Erythema [Recovered/Resolved]
  - Eye irritation [Unknown]
  - Urticaria [Recovered/Resolved]
  - Blepharitis [Not Recovered/Not Resolved]
  - Dizziness [Recovered/Resolved]
  - Headache [Recovered/Resolved]
  - Ocular hyperaemia [Unknown]
  - Eye pain [Not Recovered/Not Resolved]
  - Pruritus [Recovered/Resolved]
  - Respiratory distress [Recovered/Resolved]
  - Seizure [Recovered/Resolved]

NARRATIVE: CASE EVENT DATE: 2018
